FAERS Safety Report 5586787-3 (Version None)
Quarter: 2008Q1

REPORT INFORMATION
  Report Type: 
  Country: None (occurrence: None)
  Receive Date: 20080110
  Receipt Date: 20070302
  Transmission Date: 20080703
  Serious: Yes (Hospitalization)
  Sender: FDA-Public Use
  Company Number: PHBS2007CH03719

PATIENT
  Age: 81 Year
  Sex: Male

DRUGS (6)
  1. CIBADREX [Suspect]
     Dates: end: 20060827
  2. NITRODERM [Suspect]
     Route: 062
  3. DANCOR [Suspect]
     Dosage: 1 DOSAGE FORM/DAY
  4. SOTALOL HCL [Suspect]
  5. ASPEGIC BABY [Concomitant]
     Dosage: 1 DOSAGE FORM PER DAY, UNK
  6. PLAVIX [Concomitant]
     Dosage: 1 DOSAGE FORM PER DAY

REACTIONS (12)
  - CAROTID BRUIT [None]
  - DEHYDRATION [None]
  - DIZZINESS [None]
  - DYSPNOEA [None]
  - HEPATOMEGALY [None]
  - HYPONATRAEMIA [None]
  - HYPOTENSION [None]
  - MALAISE [None]
  - RESPIRATORY DISORDER [None]
  - SYNCOPE [None]
  - URINE SODIUM INCREASED [None]
  - VISUAL DISTURBANCE [None]
